FAERS Safety Report 9121002 (Version 1)
Quarter: 2013Q1

REPORT INFORMATION
  Report Type: Spontaneous
  Country: BR (occurrence: BR)
  Receive Date: 20130226
  Receipt Date: 20130226
  Transmission Date: 20140127
  Serious: Yes (Other)
  Sender: FDA-Public Use
  Company Number: BR-PFIZER INC-2013069090

PATIENT
  Age: 58 Year
  Sex: Female

DRUGS (4)
  1. LYRICA [Suspect]
     Dosage: 75 MG (ONE CAPSULE), 2X/DAY
     Route: 048
     Dates: start: 2012, end: 2012
  2. LOXONIN [Concomitant]
     Indication: PAIN
  3. PANTOPRAZOLE [Concomitant]
     Indication: GASTRIC DISORDER
  4. RIVOTRIL [Concomitant]
     Indication: SLEEP DISORDER

REACTIONS (2)
  - Upper limb fracture [Unknown]
  - Gastritis [Unknown]
